FAERS Safety Report 8600817-3 (Version None)
Quarter: 2012Q3

REPORT INFORMATION
  Report Type: 
  Country: None (occurrence: None)
  Receive Date: 20120817
  Receipt Date: 20120808
  Transmission Date: 20120928
  Serious: Yes (Other)
  Sender: FDA-Public Use
  Company Number: BR-JNJFOC-20120804535

PATIENT
  Age: 63 Year
  Sex: Female

DRUGS (2)
  1. LEVOFLOXACIN [Suspect]
     Indication: LOWER RESPIRATORY TRACT INFECTION
     Route: 048
  2. LEVOFLOXACIN [Suspect]
     Dosage: FOR 10 DAYS
     Route: 048

REACTIONS (2)
  - TENDON DISORDER [None]
  - ROTATOR CUFF SYNDROME [None]
